FAERS Safety Report 7373348-9 (Version None)
Quarter: 2011Q1

REPORT INFORMATION
  Report Type: 
  Country: None (occurrence: None)
  Receive Date: 20110324
  Receipt Date: 20110315
  Transmission Date: 20110831
  Serious: Yes (Hospitalization)
  Sender: FDA-Public Use
  Company Number: GB-AMGEN-GBRSP2011014425

PATIENT
  Sex: Male
  Weight: 78.8 kg

DRUGS (4)
  1. ARANESP [Suspect]
     Dosage: 60 A?G, Q2WK
     Route: 058
     Dates: start: 20110301
  2. ARANESP [Suspect]
     Dosage: 30 A?G, QWK
     Route: 058
     Dates: start: 20110117, end: 20110301
  3. ARANESP [Suspect]
     Dosage: 30 A?G, QWK
     Dates: start: 20100913, end: 20110117
  4. ARANESP [Suspect]
     Indication: RENAL FAILURE CHRONIC
     Dosage: 20 A?G, QWK
     Route: 058
     Dates: start: 20100825, end: 20100912

REACTIONS (4)
  - MOBILITY DECREASED [None]
  - INJECTION SITE SWELLING [None]
  - INCORRECT ROUTE OF DRUG ADMINISTRATION [None]
  - INJECTION SITE PAIN [None]
